FAERS Safety Report 14664112 (Version 2)
Quarter: 2018Q1

REPORT INFORMATION
  Report Type: Spontaneous
  Country: US (occurrence: US)
  Receive Date: 20180321
  Receipt Date: 20180322
  Transmission Date: 20180509
  Serious: No
  Sender: FDA-Public Use
  Company Number: US-009507513-1803USA008487

PATIENT
  Sex: Female

DRUGS (1)
  1. NEXPLANON [Suspect]
     Active Substance: ETONOGESTREL
     Dosage: 1 DF, EVERY THREE YEARS
     Route: 059
     Dates: start: 20180319

REACTIONS (3)
  - No adverse event [Unknown]
  - Device deployment issue [Unknown]
  - Skin turgor decreased [Unknown]

NARRATIVE: CASE EVENT DATE: 20180319
